FAERS Safety Report 9709676 (Version 1)
Quarter: 2013Q4

REPORT INFORMATION
  Report Type: Spontaneous
  Country: US (occurrence: US)
  Receive Date: 20131126
  Receipt Date: 20131126
  Transmission Date: 20140711
  Serious: Yes (Hospitalization, Other)
  Sender: FDA-Public Use
  Company Number: US-JNJFOC-20131110905

PATIENT
  Age: 24 Year
  Sex: Male
  Weight: 55.5 kg

DRUGS (5)
  1. DOXORUBICIN HYDROCHLORIDE (DOXIL) [Suspect]
     Indication: SARCOMA
     Route: 042
  2. CYCLOPHOSPHAMIDE [Suspect]
     Indication: SARCOMA
     Route: 065
  3. VINCRISTINE [Suspect]
     Indication: SARCOMA
     Route: 065
  4. PREDNISONE [Suspect]
     Indication: SARCOMA
     Route: 065
  5. VP-16 [Suspect]
     Indication: SARCOMA
     Route: 065

REACTIONS (5)
  - Bacteraemia [Unknown]
  - Sarcoma [Unknown]
  - Deep vein thrombosis [Unknown]
  - Off label use [Unknown]
  - Multiple allergies [Unknown]
